FAERS Safety Report 15053435 (Version 2)
Quarter: 2018Q3

REPORT INFORMATION
  Report Type: Spontaneous
  Country: IT (occurrence: IT)
  Receive Date: 20180622
  Receipt Date: 20180907
  Transmission Date: 20181010
  Serious: Yes (Other)
  Sender: FDA-Public Use
  Company Number: IT-MYLANLABS-2018M1042572

PATIENT
  Age: 56 Year
  Sex: Female

DRUGS (4)
  1. ZOLEDRONIC ACID [Suspect]
     Active Substance: ZOLEDRONIC ACID
     Indication: OSTEOPOROSIS
     Dosage: 4 MG, MONTHLY (INFUSIONS, FOR 4 YEARS)
     Route: 042
     Dates: end: 200604
  2. PREDNISONE. [Concomitant]
     Active Substance: PREDNISONE
     Dosage: 60 MG, DAILY (INITIALLY FOLLOWED BY GRADUAL TAPERING)
  3. PAMIDRONATE [Suspect]
     Active Substance: PAMIDRONATE DISODIUM
     Indication: OSTEOPOROSIS
     Dosage: 90 MG, MONTHLY (INFUSION, FOR THE FIRST 2 YEARS AFTER TRANSPLANT)
     Route: 042
  4. PREDNISONE. [Concomitant]
     Active Substance: PREDNISONE
     Indication: PRODUCT USED FOR UNKNOWN INDICATION
     Dosage: 6 MG, DAILY (REPLACEMENT DOSE)

REACTIONS (1)
  - Femur fracture [Not Recovered/Not Resolved]
